FAERS Safety Report 10204351 (Version 1)
Quarter: 2014Q2

REPORT INFORMATION
  Report Type: Report from Study
  Country: KR (occurrence: KR)
  Receive Date: 20140529
  Receipt Date: 20140529
  Transmission Date: 20141212
  Serious: No
  Sender: FDA-Public Use
  Company Number: PHHY2014KR065944

PATIENT
  Age: 53 Year
  Sex: Male

DRUGS (19)
  1. AMN107 [Suspect]
     Indication: CHRONIC MYELOID LEUKAEMIA
     Dosage: 600 MG, PER DAY
     Route: 048
     Dates: start: 20140226, end: 20140421
  2. FUNGIZONE [Concomitant]
     Indication: CHRONIC MYELOID LEUKAEMIA
     Route: 042
     Dates: start: 20140423, end: 20140425
  3. DENOGAN [Concomitant]
     Indication: PYREXIA
     Dates: start: 20140423, end: 20140425
  4. PEPTAZOL [Concomitant]
     Indication: GASTROINTESTINAL DISORDER
     Route: 042
     Dates: start: 20140423, end: 20140425
  5. MAXIPIME [Concomitant]
     Indication: CHRONIC MYELOID LEUKAEMIA
     Dosage: UNK
     Route: 042
     Dates: start: 20140423, end: 20140425
  6. METRONIDAZOLE [Concomitant]
     Indication: INFECTION PROPHYLAXIS
     Route: 048
     Dates: start: 20140303, end: 20140306
  7. ALLOPURINOL [Concomitant]
     Dosage: UNK
     Route: 048
     Dates: start: 20140213, end: 20140306
  8. LEVOFLOXACIN [Concomitant]
     Indication: INFECTION PROPHYLAXIS
     Route: 048
     Dates: start: 20140303, end: 20140306
  9. MOSAPRIDE CITRATE [Concomitant]
     Indication: GASTROINTESTINAL DISORDER
     Dosage: UNK
     Route: 048
     Dates: start: 20140214, end: 20140422
  10. TACOPEN [Concomitant]
     Indication: BACK PAIN
     Dates: start: 20140220, end: 20140422
  11. VANCOCIN CP [Concomitant]
     Indication: CHRONIC MYELOID LEUKAEMIA
     Route: 042
     Dates: start: 20140424, end: 20140425
  12. VIMOVO [Concomitant]
     Indication: BACK PAIN
     Route: 048
     Dates: start: 20140213, end: 20140421
  13. LIMAPROST ALFADEX [Concomitant]
     Indication: BACK PAIN
     Route: 048
     Dates: start: 20140306, end: 20140423
  14. ACECLOFENAC [Concomitant]
     Indication: BACK PAIN
     Route: 048
     Dates: start: 20140306, end: 20140320
  15. GABAPENTIN [Concomitant]
     Indication: BACK PAIN
     Route: 048
     Dates: start: 20140306, end: 20140423
  16. CEFTAZIDIME [Concomitant]
     Indication: CHRONIC MYELOID LEUKAEMIA
     Dosage: UNK
     Route: 042
     Dates: start: 20140421, end: 20140422
  17. GAZET [Concomitant]
     Indication: GASTROINTESTINAL DISORDER
     Route: 048
     Dates: start: 20140417, end: 20140421
  18. URSA [Concomitant]
     Indication: CHRONIC MYELOID LEUKAEMIA
     Dates: start: 20140422, end: 20140423
  19. FENTANYL CITRATE [Concomitant]
     Indication: BACK PAIN
     Route: 042
     Dates: start: 20140423, end: 20140426

REACTIONS (1)
  - Insomnia [Recovered/Resolved]
